FAERS Safety Report 22106460 (Version 1)
Quarter: 2023Q1

REPORT INFORMATION
  Report Type: Spontaneous
  Country: US (occurrence: US)
  Receive Date: 20230317
  Receipt Date: 20230317
  Transmission Date: 20230418
  Serious: Yes (Other)
  Sender: FDA-Public Use
  Company Number: US-SA-2023SA077788

PATIENT
  Age: 62 Year
  Sex: Male

DRUGS (3)
  1. CLOPIDOGREL BISULFATE [Suspect]
     Active Substance: CLOPIDOGREL BISULFATE
     Indication: Acute myocardial infarction
     Dosage: UNK
  2. ASPIRIN [Suspect]
     Active Substance: ASPIRIN
     Indication: Acute myocardial infarction
  3. APIXABAN [Suspect]
     Active Substance: APIXABAN
     Indication: Acute myocardial infarction
     Dosage: UNK

REACTIONS (1)
  - Cerebral infarction [Recovering/Resolving]
